FAERS Safety Report 11848143 (Version 2)
Quarter: 2016Q1

REPORT INFORMATION
  Report Type: Spontaneous
  Country: US (occurrence: US)
  Receive Date: 20151217
  Receipt Date: 20160112
  Transmission Date: 20160526
  Serious: No
  Sender: FDA-Public Use
  Company Number: US-PFIZER INC-2015445008

PATIENT
  Age: 28 Year
  Sex: Female

DRUGS (6)
  1. ZOLOFT [Suspect]
     Active Substance: SERTRALINE HYDROCHLORIDE
     Indication: DEPRESSION
  2. ZOLOFT [Suspect]
     Active Substance: SERTRALINE HYDROCHLORIDE
     Indication: RELAXATION THERAPY
     Dosage: 50 MG, TIMES ONE
     Route: 048
     Dates: start: 20151212
  3. LAMICTAL [Concomitant]
     Active Substance: LAMOTRIGINE
     Dosage: UNK
  4. ZOLOFT [Suspect]
     Active Substance: SERTRALINE HYDROCHLORIDE
     Indication: EPILEPSY
  5. KEPPRA [Concomitant]
     Active Substance: LEVETIRACETAM
     Dosage: UNK
  6. VEMPAC [Concomitant]
     Dosage: UNK

REACTIONS (8)
  - Muscle twitching [Unknown]
  - Muscle tightness [Unknown]
  - Dyskinesia [Unknown]
  - Balance disorder [Unknown]
  - Decreased appetite [Unknown]
  - Back pain [Unknown]
  - Product use issue [Unknown]
  - Insomnia [Unknown]

NARRATIVE: CASE EVENT DATE: 20151212
